FAERS Safety Report 4527883-9 (Version None)
Quarter: 2004Q4

REPORT INFORMATION
  Report Type: 
  Country: None (occurrence: None)
  Receive Date: 20041123
  Receipt Date: 20040714
  Transmission Date: 20050328
  Serious: Yes (Other)
  Sender: FDA-Public Use
  Company Number: HQWYE135615JUL04

PATIENT
  Age: 52 Year
  Sex: Female

DRUGS (2)
  1. ZOSYN [Suspect]
     Indication: LIVER ABSCESS
     Dosage: 4.5 G 1X PER 8 HR, INTRAVENOUS
     Route: 042
     Dates: start: 20040531, end: 20040708
  2. LEVAQUIN [Suspect]
     Indication: ABSCESS

REACTIONS (1)
  - URTICARIA [None]
